FAERS Safety Report 6126625-3 (Version None)
Quarter: 2009Q1

REPORT INFORMATION
  Report Type: 
  Country: None (occurrence: None)
  Receive Date: 20090320
  Receipt Date: 20090312
  Transmission Date: 20090719
  Serious: Yes (Life-Threatening, Other)
  Sender: FDA-Public Use
  Company Number: FR-ABBOTT-01P-056-0111486-00

PATIENT
  Age: 42 Year
  Sex: Female
  Weight: 41 kg

DRUGS (12)
  1. NORVIR [Suspect]
     Indication: HIV INFECTION
     Route: 048
     Dates: start: 20000515, end: 20010825
  2. STAVUDINE [Suspect]
     Indication: HIV INFECTION
     Route: 048
     Dates: start: 20000515, end: 20010825
  3. DIDANOSINE [Suspect]
     Indication: HIV INFECTION
     Route: 048
     Dates: start: 20000515, end: 20010825
  4. SAQUINAVIR [Suspect]
     Indication: HIV INFECTION
     Route: 048
     Dates: start: 20000515, end: 20010825
  5. BACTRIM [Concomitant]
     Indication: DRUG USE FOR UNKNOWN INDICATION
     Route: 048
  6. ROXITHROMYCIN [Concomitant]
     Indication: TUBERCULOSIS
     Dates: start: 20010401
  7. AMOXICILLIN [Concomitant]
     Indication: TUBERCULOSIS
     Dates: start: 20010401
  8. CELESTENE [Concomitant]
     Indication: NEONATAL RESPIRATORY DISTRESS SYNDROME
     Dates: start: 20010801
  9. CELESTENE [Concomitant]
     Indication: PROPHYLAXIS
  10. LEVOCARNITINE [Concomitant]
     Indication: MITOCHONDRIAL CYTOPATHY
     Route: 042
     Dates: start: 20010826
  11. THIAMINE HCL [Concomitant]
     Indication: MITOCHONDRIAL CYTOPATHY
     Route: 042
     Dates: start: 20010826
  12. RIBOFLAVIN TAB [Concomitant]
     Indication: MITOCHONDRIAL CYTOPATHY
     Route: 042
     Dates: start: 20010826

REACTIONS (14)
  - ABDOMINAL PAIN [None]
  - ANOREXIA [None]
  - BLOOD PH DECREASED [None]
  - DYSPNOEA [None]
  - HEPATIC ENZYME INCREASED [None]
  - LACTIC ACIDOSIS [None]
  - METABOLIC ACIDOSIS [None]
  - PERICARDIAL EFFUSION [None]
  - PNEUMONITIS [None]
  - PREMATURE LABOUR [None]
  - TACHYPNOEA [None]
  - TRANSAMINASES INCREASED [None]
  - UNEVALUABLE EVENT [None]
  - VOMITING [None]
